FAERS Safety Report 24698855 (Version 1)
Quarter: 2024Q4

REPORT INFORMATION
  Report Type: Spontaneous
  Country: CN (occurrence: CN)
  Receive Date: 20241205
  Receipt Date: 20241205
  Transmission Date: 20250115
  Serious: Yes (Hospitalization)
  Sender: ROCHE
  Company Number: CN-ROCHE-10000145208

PATIENT
  Age: 4 Year
  Sex: Female
  Weight: 52.9 kg

DRUGS (29)
  1. PERTUZUMAB [Suspect]
     Active Substance: PERTUZUMAB
     Indication: Neoplasm malignant
     Route: 042
     Dates: start: 20241105, end: 20241105
  2. PERTUZUMAB [Suspect]
     Active Substance: PERTUZUMAB
     Indication: Endocrine neoplasm malignant
  3. PERTUZUMAB [Suspect]
     Active Substance: PERTUZUMAB
     Indication: Breast cancer
  4. PERTUZUMAB [Suspect]
     Active Substance: PERTUZUMAB
     Indication: Pulmonary imaging procedure abnormal
  5. PERTUZUMAB [Suspect]
     Active Substance: PERTUZUMAB
     Indication: Scan abdomen abnormal
  6. PERTUZUMAB [Suspect]
     Active Substance: PERTUZUMAB
     Indication: Myelosuppression
  7. PERTUZUMAB [Suspect]
     Active Substance: PERTUZUMAB
     Indication: Rash
  8. TRASTUZUMAB [Suspect]
     Active Substance: TRASTUZUMAB
     Indication: Neoplasm malignant
     Route: 042
     Dates: start: 20241105, end: 20241105
  9. TRASTUZUMAB [Suspect]
     Active Substance: TRASTUZUMAB
     Indication: Endocrine neoplasm malignant
  10. TRASTUZUMAB [Suspect]
     Active Substance: TRASTUZUMAB
     Indication: Breast cancer
  11. TRASTUZUMAB [Suspect]
     Active Substance: TRASTUZUMAB
     Indication: Pulmonary imaging procedure abnormal
  12. TRASTUZUMAB [Suspect]
     Active Substance: TRASTUZUMAB
     Indication: Scan abdomen abnormal
  13. TRASTUZUMAB [Suspect]
     Active Substance: TRASTUZUMAB
     Indication: Myelosuppression
  14. TRASTUZUMAB [Suspect]
     Active Substance: TRASTUZUMAB
     Indication: Rash
  15. CARBOPLATIN [Suspect]
     Active Substance: CARBOPLATIN
     Indication: Neoplasm malignant
     Route: 042
     Dates: start: 20241105, end: 20241105
  16. CARBOPLATIN [Suspect]
     Active Substance: CARBOPLATIN
     Indication: Endocrine neoplasm malignant
  17. CARBOPLATIN [Suspect]
     Active Substance: CARBOPLATIN
     Indication: Breast cancer
  18. CARBOPLATIN [Suspect]
     Active Substance: CARBOPLATIN
     Indication: Pulmonary imaging procedure abnormal
  19. CARBOPLATIN [Suspect]
     Active Substance: CARBOPLATIN
     Indication: Scan abdomen abnormal
  20. CARBOPLATIN [Suspect]
     Active Substance: CARBOPLATIN
     Indication: Myelosuppression
  21. CARBOPLATIN [Suspect]
     Active Substance: CARBOPLATIN
     Indication: Rash
  22. DOCETAXEL [Suspect]
     Active Substance: DOCETAXEL
     Indication: Neoplasm malignant
     Route: 042
     Dates: start: 20241105, end: 20241105
  23. DOCETAXEL [Suspect]
     Active Substance: DOCETAXEL
     Indication: Endocrine neoplasm malignant
  24. DOCETAXEL [Suspect]
     Active Substance: DOCETAXEL
     Indication: Breast cancer
  25. DOCETAXEL [Suspect]
     Active Substance: DOCETAXEL
     Indication: Pulmonary imaging procedure abnormal
  26. DOCETAXEL [Suspect]
     Active Substance: DOCETAXEL
     Indication: Scan abdomen abnormal
  27. DOCETAXEL [Suspect]
     Active Substance: DOCETAXEL
     Indication: Myelosuppression
  28. DOCETAXEL [Suspect]
     Active Substance: DOCETAXEL
     Indication: Rash
  29. FUSIDIC ACID [Concomitant]
     Active Substance: FUSIDIC ACID

REACTIONS (2)
  - Dermatitis acneiform [Recovering/Resolving]
  - Myelosuppression [Recovering/Resolving]

NARRATIVE: CASE EVENT DATE: 20241110
